FAERS Safety Report 8436548-2 (Version None)
Quarter: 2012Q2

REPORT INFORMATION
  Report Type: 
  Country: None (occurrence: None)
  Receive Date: 20120614
  Receipt Date: 20120604
  Transmission Date: 20120825
  Serious: Yes (Hospitalization)
  Sender: FDA-Public Use
  Company Number: DE-GLAXOSMITHKLINE-D0075113A

PATIENT
  Sex: Male

DRUGS (5)
  1. AZILECT [Suspect]
     Indication: PARKINSON'S DISEASE
     Route: 065
     Dates: start: 20110201, end: 20120201
  2. RAMIPRIL [Concomitant]
     Dosage: 3.75MG IN THE MORNING
     Route: 065
     Dates: start: 20110201, end: 20120201
  3. MIRTAZAPINE [Concomitant]
     Dosage: 15MG PER DAY
     Route: 065
     Dates: start: 20110201, end: 20120201
  4. TAMSULOSIN HCL [Concomitant]
     Dosage: .4MG PER DAY
     Route: 065
     Dates: start: 20110201
  5. REQUIP [Suspect]
     Indication: PARKINSON'S DISEASE
     Dosage: 16MG PER DAY
     Route: 048
     Dates: start: 20110214, end: 20120201

REACTIONS (9)
  - URINARY RETENTION [None]
  - HEAD DISCOMFORT [None]
  - MEMORY IMPAIRMENT [None]
  - DRUG INEFFECTIVE [None]
  - MULTIPLE SYSTEM ATROPHY [None]
  - NERVOUSNESS [None]
  - DISTURBANCE IN ATTENTION [None]
  - ERECTILE DYSFUNCTION [None]
  - FEAR [None]
